FAERS Safety Report 19007396 (Version 1)
Quarter: 2021Q1

REPORT INFORMATION
  Report Type: Spontaneous
  Country: US (occurrence: US)
  Receive Date: 20210315
  Receipt Date: 20210315
  Transmission Date: 20210420
  Serious: Yes (Hospitalization)
  Sender: FDA-Public Use
  Company Number: None

PATIENT
  Age: 66 Year
  Sex: Male
  Weight: 60 kg

DRUGS (1)
  1. NALTREXONE [Suspect]
     Active Substance: NALTREXONE

REACTIONS (13)
  - Injection site bruising [None]
  - Injection site rash [None]
  - Injection site erythema [None]
  - Ecchymosis [None]
  - Liver function test decreased [None]
  - Injection site pain [None]
  - Injection site reaction [None]
  - Sciatic nerve injury [None]
  - Rhabdomyolysis [None]
  - Gait inability [None]
  - Paraesthesia [None]
  - Pain [None]
  - Rash erythematous [None]

NARRATIVE: CASE EVENT DATE: 20210311
